FAERS Safety Report 5363360-3 (Version None)
Quarter: 2007Q2

REPORT INFORMATION
  Report Type: 
  Country: None (occurrence: None)
  Receive Date: 20070620
  Receipt Date: 20070606
  Transmission Date: 20071010
  Serious: Yes (Other)
  Sender: FDA-Public Use
  Company Number: NL-AMGEN-US229881

PATIENT
  Sex: Female

DRUGS (7)
  1. ENBREL [Suspect]
     Indication: PSORIATIC ARTHROPATHY
     Route: 058
     Dates: start: 20040901, end: 20061101
  2. ENBREL [Suspect]
     Route: 058
     Dates: start: 20070301
  3. METHOTREXATE [Suspect]
     Indication: PSORIATIC ARTHROPATHY
     Dates: start: 20040401, end: 20060801
  4. METHOTREXATE [Suspect]
     Dates: start: 20070301
  5. FOLIC ACID [Concomitant]
     Indication: PROPHYLAXIS
     Dates: start: 20070301
  6. EPROSARTAN [Concomitant]
     Indication: HYPERTENSION
  7. AMLODIPINE [Concomitant]
     Indication: HYPERTENSION

REACTIONS (8)
  - ANOREXIA [None]
  - CONDITION AGGRAVATED [None]
  - MALAISE [None]
  - POLYNEUROPATHY [None]
  - PSORIATIC ARTHROPATHY [None]
  - RESTLESSNESS [None]
  - SENSATION OF PRESSURE [None]
  - TREMOR [None]
